FAERS Safety Report 7083022-4 (Version None)
Quarter: 2010Q4

REPORT INFORMATION
  Report Type: 
  Country: None (occurrence: None)
  Receive Date: 20101026
  Receipt Date: 20101019
  Transmission Date: 20110411
  Serious: Yes (Death)
  Sender: FDA-Public Use
  Company Number: 2010JP006053

PATIENT
  Age: 53 Year
  Sex: Male
  Weight: 47 kg

DRUGS (5)
  1. PROGRAF [Suspect]
     Indication: LIVER TRANSPLANT
  2. RITUXIMAB (RITUXIMAB) FORMULATION UNKNOWN [Concomitant]
  3. PROSTAGLANDIN E1 (ALPROSTADIL) INFUSION [Concomitant]
  4. METHYLPREDNISOLONE [Concomitant]
  5. CYCLOPHOSPHAMIDE [Concomitant]

REACTIONS (6)
  - CONDITION AGGRAVATED [None]
  - DEPRESSED LEVEL OF CONSCIOUSNESS [None]
  - DEVICE RELATED INFECTION [None]
  - ENTEROCOCCUS TEST POSITIVE [None]
  - RESPIRATORY DISORDER [None]
  - SEPSIS [None]
